FAERS Safety Report 8364407-2 (Version None)
Quarter: 2012Q2

REPORT INFORMATION
  Report Type: 
  Country: None (occurrence: None)
  Receive Date: 20120516
  Receipt Date: 20120510
  Transmission Date: 20120825
  Serious: Yes (Hospitalization)
  Sender: FDA-Public Use
  Company Number: US-BAYER-2012-014312

PATIENT
  Age: 22 Year
  Sex: Female
  Weight: 72.562 kg

DRUGS (16)
  1. ZOFRAN [Concomitant]
     Dosage: 4 MG, UNK
     Route: 042
     Dates: start: 20070315
  2. INDERAL [Concomitant]
     Dosage: 60 MG, DAILY
     Route: 048
  3. VICODIN [Concomitant]
     Dosage: 1-2 TABLETS EVERY 6 HOURS OR AS NEEDED
     Route: 048
  4. DURICEF [Concomitant]
     Dosage: 500 MG, BID
     Route: 048
     Dates: start: 20070315
  5. MARCAINE HYDROCHLORIDE W/ EPINEPHRINE [Concomitant]
     Dosage: 30 ML, UNK
     Dates: start: 20070315
  6. TOPROL-XL [Concomitant]
  7. VERSED [Concomitant]
     Dosage: 2 MG, UNK
     Route: 042
     Dates: start: 20070315
  8. MULTI-VITAMINS [Concomitant]
  9. YASMIN [Suspect]
     Dosage: UNK
     Dates: start: 20051201, end: 20070327
  10. PREDNISONE TAB [Concomitant]
     Dosage: 10 MG, BID
     Route: 048
     Dates: start: 20070120
  11. TRIAMTERENE [Concomitant]
     Dosage: 37.5 MG/25 MG, QD
     Route: 048
     Dates: start: 20070127, end: 20070306
  12. CELEBREX [Concomitant]
     Dosage: 200 MG, DAILY
     Route: 048
  13. AMOXICILLIN [Concomitant]
     Dosage: 875 MG, BID
     Route: 048
     Dates: start: 20070213
  14. ALDARA [Concomitant]
  15. PREDNISONE TAB [Concomitant]
     Dosage: 10 MG, BID
     Route: 048
     Dates: start: 20070125
  16. ANCEF [Concomitant]
     Dosage: 1 G, UNK
     Route: 042
     Dates: start: 20070315

REACTIONS (2)
  - PULMONARY EMBOLISM [None]
  - DEEP VEIN THROMBOSIS [None]
